FAERS Safety Report 7554893-X (Version None)
Quarter: 2011Q2

REPORT INFORMATION
  Report Type: 
  Country: None (occurrence: None)
  Receive Date: 20110617
  Receipt Date: 20110614
  Transmission Date: 20111010
  Serious: Yes (Death)
  Sender: FDA-Public Use
  Company Number: US-CUBIST-2011S1000384

PATIENT
  Age: 65 Year
  Sex: Male
  Weight: 65 kg

DRUGS (4)
  1. CUBICIN [Suspect]
     Route: 042
  2. VANCOMYCIN [Concomitant]
     Indication: ENTEROCOCCAL INFECTION
  3. CUBICIN [Suspect]
     Indication: ENTEROCOCCAL INFECTION
     Route: 042
  4. GENTAMICIN [Concomitant]
     Indication: PRODUCT USED FOR UNKNOWN INDICATION

REACTIONS (2)
  - DEATH [None]
  - ANTIMICROBIAL SUSCEPTIBILITY TEST RESISTANT [None]
